FAERS Safety Report 10568198 (Version 1)
Quarter: 2014Q4

REPORT INFORMATION
  Report Type: Spontaneous
  Country: JP (occurrence: None)
  Receive Date: 20141104
  Receipt Date: 20141104
  Transmission Date: 20150529
  Serious: Yes (Hospitalization)
  Sender: FDA-Public Use
  Company Number: 2014BV000002

PATIENT
  Age: 64 Year
  Sex: Male
  Weight: 58.5 kg

DRUGS (2)
  1. METHOTREXATE INJECTION [Suspect]
     Active Substance: METHOTREXATE
     Indication: RHEUMATOID ARTHRITIS
     Dates: start: 20140513, end: 20140920
  2. BLINDED ORAL STUDY DRUGS [Suspect]
     Active Substance: INVESTIGATIONAL PRODUCT
     Indication: RHEUMATOID ARTHRITIS
     Route: 048
     Dates: start: 20140513, end: 20140930

REACTIONS (2)
  - Pneumonia [None]
  - Pneumothorax spontaneous [None]

NARRATIVE: CASE EVENT DATE: 20140930
